FAERS Safety Report 8976061 (Version 1)
Quarter: 2012Q4

REPORT INFORMATION
  Report Type: Report from Study
  Country: CA (occurrence: CA)
  Receive Date: 20121220
  Receipt Date: 20121220
  Transmission Date: 20130627
  Serious: Yes (Other)
  Sender: FDA-Public Use
  Company Number: CA-ROCHE-1169710

PATIENT
  Sex: Female
  Weight: 55.06 kg

DRUGS (1)
  1. OMALIZUMAB [Suspect]
     Indication: ASTHMA
     Dosage: 375 mg, Unknown
     Route: 058
     Dates: start: 20060801

REACTIONS (10)
  - Sacroiliitis [Recovering/Resolving]
  - Stress [Recovering/Resolving]
  - Hypersomnia [Recovering/Resolving]
  - Depression [Unknown]
  - Fatigue [Not Recovered/Not Resolved]
  - Psoriasis [Not Recovered/Not Resolved]
  - Arthralgia [Unknown]
  - Apnoea [Not Recovered/Not Resolved]
  - Blood immunoglobulin E increased [Unknown]
  - Insomnia [Recovering/Resolving]
